FAERS Safety Report 8954473 (Version 2)
Quarter: 2012Q4

REPORT INFORMATION
  Report Type: 
  Country: GB (occurrence: GB)
  Receive Date: 20121210
  Receipt Date: 20121227
  Transmission Date: 20130627
  Serious: Yes (Other)
  Sender: FDA-Public Use
  Company Number: PHFR2012GB006297

PATIENT
  Age: 56 Year
  Sex: Male

DRUGS (1)
  1. CLOZARIL [Suspect]
     Indication: SCHIZOPHRENIA
     Dosage: UNK
     Route: 048
     Dates: start: 19970214

REACTIONS (4)
  - Chronic obstructive pulmonary disease [Unknown]
  - Lower respiratory tract infection [Unknown]
  - Pyrexia [Unknown]
  - Platelet count decreased [Unknown]
